FAERS Safety Report 17266056 (Version 4)
Quarter: 2020Q1

REPORT INFORMATION
  Report Type: Report from Study
  Country: FI (occurrence: FI)
  Receive Date: 20200114
  Receipt Date: 20200302
  Transmission Date: 20200409
  Serious: Yes (Hospitalization)
  Sender: FDA-Public Use
  Company Number: FI-ROCHE-2461921

PATIENT
  Age: 74 Year
  Sex: Female
  Weight: 70.8 kg

DRUGS (12)
  1. ENALAPRIL [Concomitant]
     Active Substance: ENALAPRIL
     Route: 048
     Dates: start: 20181204
  2. ROSUVASTATIN. [Concomitant]
     Active Substance: ROSUVASTATIN
     Route: 048
     Dates: start: 20181204
  3. SOMAC [Concomitant]
     Active Substance: PANTOPRAZOLE SODIUM
     Dosage: AS NEEDED
     Route: 048
     Dates: start: 20181204
  4. PRIMPERAN [Concomitant]
     Active Substance: METOCLOPRAMIDE HYDROCHLORIDE
     Dosage: AS NEEDED
     Route: 048
     Dates: start: 20181204
  5. PANADOL FORTE [CAFFEINE;PARACETAMOL] [Concomitant]
     Dosage: AS NEEDED
     Route: 048
     Dates: start: 20190528
  6. TRASTUZUMAB. [Suspect]
     Active Substance: TRASTUZUMAB
  7. TRASTUZUMAB. [Suspect]
     Active Substance: TRASTUZUMAB
     Indication: HER-2 POSITIVE BREAST CANCER
     Dosage: DATE OF MOST RECENT DOSE OF HERCEPTIN IV AT 432 MG PRIOR TO AE ONSET 18/OCT/2019.?8-MG/KG IV LOADING
     Route: 041
     Dates: start: 20190906
  8. BURANA [Concomitant]
     Active Substance: IBUPROFEN
     Route: 048
     Dates: start: 20190528
  9. PERTUZUMAB. [Suspect]
     Active Substance: PERTUZUMAB
     Indication: HER-2 POSITIVE BREAST CANCER
     Dosage: FIXED NON-WEIGHT-BASED DOSE OF 840 MG IV LOADING DOSE AND THEN 420 MG IV MAINTENANCE DOSE.?DATE OF M
     Route: 042
     Dates: start: 20190906
  10. PERTUZUMAB. [Suspect]
     Active Substance: PERTUZUMAB
     Indication: HER-2 POSITIVE BREAST CANCER
     Dosage: A LOADING DOSE OF 1200 MG PERTUZUMAB AND 600 MG TRASTUZUMAB IS THEN FOLLOWED BY A MAINTENANCE DOSE O
     Route: 058
     Dates: start: 20190704
  11. TRIMETIN [TRIMETHOPRIM] [Concomitant]
     Route: 048
     Dates: start: 20190627, end: 20190707
  12. TAFLOTAN [Concomitant]
     Active Substance: TAFLUPROST
     Route: 047
     Dates: start: 20160101

REACTIONS (1)
  - Erysipelas [Recovered/Resolved]

NARRATIVE: CASE EVENT DATE: 20191029
